FAERS Safety Report 13014501 (Version 3)
Quarter: 2017Q1

REPORT INFORMATION
  Report Type: Spontaneous
  Country: JP (occurrence: JP)
  Receive Date: 20161209
  Receipt Date: 20170213
  Transmission Date: 20170428
  Serious: Yes (Death, Hospitalization, Other)
  Sender: FDA-Public Use
  Company Number: JP-BRISTOL-MYERS SQUIBB COMPANY-BMS-2016-104961

PATIENT
  Age: 56 Year
  Sex: Male

DRUGS (4)
  1. NAIXAN                             /00256201/ [Suspect]
     Active Substance: NAPROXEN
     Indication: TUMOUR ASSOCIATED FEVER
     Route: 065
  2. OPDIVO [Suspect]
     Active Substance: NIVOLUMAB
     Indication: PRODUCT USED FOR UNKNOWN INDICATION
     Dosage: 160 MG, UNK
     Route: 041
     Dates: start: 20161021, end: 20161021
  3. NAIXAN                             /00256201/ [Suspect]
     Active Substance: NAPROXEN
     Indication: PAIN
     Dosage: 600 MG, QD
     Route: 048
     Dates: start: 20160617, end: 20161124
  4. OPDIVO [Suspect]
     Active Substance: NIVOLUMAB
     Indication: NON-SMALL CELL LUNG CANCER RECURRENT
     Dosage: 3 MG/KG, UNK
     Route: 041
     Dates: start: 20161007, end: 20161007

REACTIONS (3)
  - Duodenal ulcer haemorrhage [Recovered/Resolved with Sequelae]
  - Malignant neoplasm progression [Fatal]
  - Transfusion [Unknown]

NARRATIVE: CASE EVENT DATE: 20161104
